FAERS Safety Report 14172596 (Version 1)
Quarter: 2017Q4

REPORT INFORMATION
  Report Type: Report from Study
  Country: US (occurrence: US)
  Receive Date: 20171109
  Receipt Date: 20171109
  Transmission Date: 20180321
  Serious: Yes (Other)
  Sender: FDA-Public Use
  Company Number: US-ROCHE-1941702

PATIENT
  Age: 22 Year
  Sex: Female

DRUGS (2)
  1. DOXEPIN [Concomitant]
     Active Substance: DOXEPIN
  2. XOLAIR [Suspect]
     Active Substance: OMALIZUMAB
     Indication: URTICARIA
     Dosage: LAST INJECTION DATE: 12/MAY/2017
     Route: 058

REACTIONS (11)
  - Anaphylactic reaction [Recovered/Resolved]
  - Dyspnoea [Unknown]
  - Obesity [Unknown]
  - Dyspnoea paroxysmal nocturnal [Unknown]
  - Oropharyngeal pain [Recovered/Resolved]
  - Cough [Unknown]
  - Rash [Unknown]
  - Pruritus [Unknown]
  - Nasal congestion [Unknown]
  - Sneezing [Unknown]
  - Wheezing [Unknown]

NARRATIVE: CASE EVENT DATE: 20171103
